FAERS Safety Report 20724424 (Version 5)
Quarter: 2023Q1

REPORT INFORMATION
  Report Type: Spontaneous
  Country: GB (occurrence: GB)
  Receive Date: 20220419
  Receipt Date: 20230225
  Transmission Date: 20230417
  Serious: Yes (Hospitalization)
  Sender: FDA-Public Use
  Company Number: GB-ALXN-A202204697

PATIENT
  Sex: Female

DRUGS (10)
  1. STRENSIQ [Suspect]
     Active Substance: ASFOTASE ALFA
     Dosage: 1 MG/KG, TIW
     Route: 058
     Dates: start: 20200607
  2. STRENSIQ [Suspect]
     Active Substance: ASFOTASE ALFA
     Dosage: 1 MG/KG, TIW
     Route: 058
     Dates: start: 20220607, end: 20220608
  3. STRENSIQ [Suspect]
     Active Substance: ASFOTASE ALFA
     Dosage: 1 MG/KG, TIW
     Route: 058
     Dates: start: 20220726
  4. STRENSIQ [Suspect]
     Active Substance: ASFOTASE ALFA
     Dosage: 1 MG/KG, SIX TIMES/WEEK
     Route: 058
     Dates: start: 20210608, end: 20220606
  5. STRENSIQ [Suspect]
     Active Substance: ASFOTASE ALFA
     Indication: Hypophosphatasia
     Dosage: 1 MG/KG, SIX TIMES PER WEEK
     Route: 058
     Dates: start: 20200420, end: 20210531
  6. STRENSIQ [Suspect]
     Active Substance: ASFOTASE ALFA
     Dosage: 0.88ML (35MG), SIX TIMES A WEEK
     Route: 065
  7. BUTRANS [Concomitant]
     Active Substance: BUPRENORPHINE
     Indication: Product used for unknown indication
     Dosage: 10 ?G, UNK
     Route: 065
  8. GABAPENTIN [Concomitant]
     Active Substance: GABAPENTIN
     Indication: Product used for unknown indication
     Dosage: 300 MG, UNK
     Route: 065
  9. MORPHINE SULFATE [Concomitant]
     Active Substance: MORPHINE SULFATE
     Indication: Product used for unknown indication
     Dosage: 6 MG, UNK
     Route: 065
  10. ACETAMINOPHEN [Concomitant]
     Active Substance: ACETAMINOPHEN
     Indication: Product used for unknown indication
     Dosage: 1 G, UNK
     Route: 065

REACTIONS (2)
  - Hip fracture [Recovering/Resolving]
  - Fall [Unknown]

NARRATIVE: CASE EVENT DATE: 20220328
